FAERS Safety Report 12613009 (Version 2)
Quarter: 2016Q3

REPORT INFORMATION
  Report Type: Spontaneous
  Country: IN (occurrence: IN)
  Receive Date: 20160802
  Receipt Date: 20160809
  Transmission Date: 20161109
  Serious: Yes (Other)
  Sender: FDA-Public Use
  Company Number: IN-CIPLA LTD.-2016IN10098

PATIENT

DRUGS (3)
  1. RANTAC [Concomitant]
     Active Substance: RANITIDINE HYDROCHLORIDE
     Dosage: 150 MG, BID
  2. VERMACT [Concomitant]
     Dosage: 12 MG, UNK
  3. LEVOCETIRIZINE [Suspect]
     Active Substance: LEVOCETIRIZINE
     Indication: ACARODERMATITIS
     Dosage: 5 MG, QD FOR 3 DAYS
     Route: 048

REACTIONS (1)
  - Fixed drug eruption [Recovered/Resolved]
